FAERS Safety Report 18797623 (Version 1)
Quarter: 2021Q1

REPORT INFORMATION
  Report Type: Spontaneous
  Country: CA (occurrence: CA)
  Receive Date: 20210127
  Receipt Date: 20210127
  Transmission Date: 20210419
  Serious: Yes (Other)
  Sender: FDA-Public Use
  Company Number: CA-AUROBINDO-AUR-APL-2021-002644

PATIENT
  Age: 80 Year
  Sex: Female

DRUGS (2)
  1. LISINOPRIL TABLET [Suspect]
     Active Substance: LISINOPRIL
     Indication: HYPERTENSION
     Dosage: UNK, ONCE A DAY
     Route: 048
  2. AMLODIPINE [Suspect]
     Active Substance: AMLODIPINE BESYLATE
     Indication: HYPERTENSION
     Dosage: 5 MILLIGRAM, ONCE A DAY
     Route: 048

REACTIONS (3)
  - Neoplasm malignant [Unknown]
  - Carcinoid tumour [Unknown]
  - Renal disorder [Unknown]
